FAERS Safety Report 16942552 (Version 1)
Quarter: 2019Q4

REPORT INFORMATION
  Report Type: Report from Study
  Country: BE (occurrence: BE)
  Receive Date: 20191021
  Receipt Date: 20191021
  Transmission Date: 20200122
  Serious: Yes (Death, Hospitalization)
  Sender: FDA-Public Use
  Company Number: BE-PFIZER INC-2019454051

PATIENT
  Age: 72 Year
  Sex: Male
  Weight: 77.9 kg

DRUGS (21)
  1. FLUOROURACIL. [Suspect]
     Active Substance: FLUOROURACIL
     Dosage: 3414 MG, EVERY 14 DAYS
     Route: 042
     Dates: start: 20170630, end: 20171103
  2. LEUCOVORINA [Suspect]
     Active Substance: LEUCOVORIN CALCIUM
     Indication: COLORECTAL CANCER METASTATIC
     Dosage: 759 MG, EVERY 14 DAYS
     Route: 042
     Dates: start: 20170630, end: 20171103
  3. NASUMEL [Concomitant]
  4. LASIX [Concomitant]
     Active Substance: FUROSEMIDE
  5. IRINOTECAN HCL [Suspect]
     Active Substance: IRINOTECAN HYDROCHLORIDE
     Indication: COLORECTAL CANCER METASTATIC
     Dosage: 285 MG, EVERY 14 DAYS
     Route: 042
     Dates: start: 20170630, end: 20171103
  6. ARCOXIA [Concomitant]
     Active Substance: ETORICOXIB
  7. IMODIUM [Concomitant]
     Active Substance: LOPERAMIDE HYDROCHLORIDE
  8. VITAPORS [Concomitant]
  9. XANAX [Concomitant]
     Active Substance: ALPRAZOLAM
  10. ALOXI [Concomitant]
     Active Substance: PALONOSETRON HYDROCHLORIDE
  11. TERRAMYCINE + POLYMYXINE B [Concomitant]
  12. SOLU-MEDROL [Concomitant]
     Active Substance: METHYLPREDNISOLONE SODIUM SUCCINATE
  13. ATROPINE. [Concomitant]
     Active Substance: ATROPINE
  14. FLUOROURACIL. [Suspect]
     Active Substance: FLUOROURACIL
     Indication: COLORECTAL CANCER METASTATIC
     Dosage: 800 MG, EVERY 14 DAYS
     Route: 040
     Dates: start: 20170630
  15. MOVICOL [Concomitant]
     Active Substance: POLYETHYLENE GLYCOL 3350\POTASSIUM CHLORIDE\SODIUM BICARBONATE\SODIUM CHLORIDE
  16. THEALOZ DUO [Concomitant]
  17. EMCONCOR [Concomitant]
     Active Substance: BISOPROLOL FUMARATE
  18. ZYLORIC [Concomitant]
     Active Substance: ALLOPURINOL
  19. NEULASTA [Concomitant]
     Active Substance: PEGFILGRASTIM
  20. DAFALGAN [Concomitant]
     Active Substance: ACETAMINOPHEN
  21. PRIMPERAN [Concomitant]
     Active Substance: METOCLOPRAMIDE HYDROCHLORIDE

REACTIONS (2)
  - Gastrointestinal inflammation [Recovered/Resolved]
  - Endocarditis [Fatal]

NARRATIVE: CASE EVENT DATE: 20171113
